FAERS Safety Report 7878779-6 (Version None)
Quarter: 2011Q4

REPORT INFORMATION
  Report Type: 
  Country: None (occurrence: None)
  Receive Date: 20111021
  Receipt Date: 20110719
  Transmission Date: 20120403
  Serious: No
  Sender: FDA-Public Use
  Company Number: US-005902

PATIENT
  Sex: Male

DRUGS (1)
  1. DEGARELIX [Suspect]
     Indication: PROSTATE CANCER
     Dosage: (SUBCUTANEOUS)
     Route: 058
     Dates: start: 20090101, end: 20110101

REACTIONS (1)
  - INJECTION SITE NODULE [None]
